FAERS Safety Report 17228613 (Version 1)
Quarter: 2020Q1

REPORT INFORMATION
  Report Type: Spontaneous
  Country: US (occurrence: US)
  Receive Date: 20200103
  Receipt Date: 20200103
  Transmission Date: 20200409
  Serious: No
  Sender: FDA-Public Use
  Company Number: US-ASTRAZENECA-2019SF77152

PATIENT
  Sex: Female

DRUGS (1)
  1. BYDUREON BCISE [Suspect]
     Active Substance: EXENATIDE
     Indication: DIABETES MELLITUS
     Route: 058
     Dates: start: 2019

REACTIONS (7)
  - Rash [Unknown]
  - Injection site haemorrhage [Unknown]
  - Contusion [Unknown]
  - Injection site nodule [Unknown]
  - Injection site urticaria [Unknown]
  - Pruritus [Unknown]
  - Incorrect route of product administration [Unknown]
